FAERS Safety Report 24613225 (Version 1)
Quarter: 2024Q4

REPORT INFORMATION
  Report Type: Spontaneous
  Country: CN (occurrence: CN)
  Receive Date: 20241113
  Receipt Date: 20241113
  Transmission Date: 20250114
  Serious: Yes (Other)
  Sender: ELI LILLY AND COMPANY
  Company Number: CN-ELI_LILLY_AND_COMPANY-CN202411003038

PATIENT
  Age: 48 Year
  Sex: Male
  Weight: 58 kg

DRUGS (6)
  1. ALIMTA [Suspect]
     Active Substance: PEMETREXED DISODIUM
     Indication: Chemotherapy
     Dosage: 0.8 G, DAILY
     Route: 041
     Dates: start: 20240930, end: 20240930
  2. TISLELIZUMAB [Suspect]
     Active Substance: TISLELIZUMAB
     Indication: Chemotherapy
     Dosage: 200 MG, DAILY
     Route: 041
     Dates: start: 20240930, end: 20240930
  3. CARBOPLATIN [Suspect]
     Active Substance: CARBOPLATIN
     Indication: Chemotherapy
     Dosage: 0.55 G, DAILY
     Route: 041
     Dates: start: 20240930, end: 20240930
  4. SODIUM CHLORIDE [Concomitant]
     Active Substance: SODIUM CHLORIDE
     Indication: Medication dilution
     Dosage: 100 ML, DAILY
     Route: 041
     Dates: start: 20240930, end: 20240930
  5. SODIUM CHLORIDE [Concomitant]
     Active Substance: SODIUM CHLORIDE
     Dosage: 100 ML, DAILY
     Route: 041
     Dates: start: 20240930, end: 20240930
  6. DEXTROSE [Concomitant]
     Active Substance: DEXTROSE MONOHYDRATE
     Indication: Medication dilution
     Dosage: 500 ML, DAILY
     Route: 041
     Dates: start: 20240930, end: 20240930

REACTIONS (1)
  - Full blood count decreased [Unknown]

NARRATIVE: CASE EVENT DATE: 20241021
